FAERS Safety Report 9742790 (Version 1)
Quarter: 2013Q4

REPORT INFORMATION
  Report Type: Spontaneous
  Country: US (occurrence: US)
  Receive Date: 20131210
  Receipt Date: 20131210
  Transmission Date: 20140711
  Serious: No
  Sender: FDA-Public Use
  Company Number: US-ENDO PHARMACEUTICALS INC.-BACL20130002

PATIENT
  Age: 66 Year
  Sex: Male
  Weight: 90.8 kg

DRUGS (1)
  1. BACLOFEN TABLETS 10MG [Suspect]
     Indication: MUSCLE SPASMS
     Route: 048
     Dates: start: 20130328

REACTIONS (3)
  - Feeling abnormal [Unknown]
  - Adverse event [Unknown]
  - Pollakiuria [Unknown]
